FAERS Safety Report 12926294 (Version 1)
Quarter: 2016Q4

REPORT INFORMATION
  Report Type: Spontaneous
  Country: SG (occurrence: SG)
  Receive Date: 20161109
  Receipt Date: 20161109
  Transmission Date: 20170207
  Serious: Yes (Death)
  Sender: FDA-Public Use
  Company Number: PHHY2016SG153760

PATIENT
  Sex: Male

DRUGS (1)
  1. EVEROLIMUS [Suspect]
     Active Substance: EVEROLIMUS
     Indication: LIPOSARCOMA
     Dosage: UNK
     Route: 065
     Dates: start: 2016

REACTIONS (2)
  - Product use issue [Unknown]
  - Death [Fatal]
